FAERS Safety Report 23321278 (Version 2)
Quarter: 2023Q4

REPORT INFORMATION
  Report Type: Report from Study
  Country: MX (occurrence: MX)
  Receive Date: 20231220
  Receipt Date: 20231227
  Transmission Date: 20240110
  Serious: Yes (Other)
  Sender: FDA-Public Use
  Company Number: MX-TAKEDA-2023TUS090528

PATIENT
  Sex: Female

DRUGS (3)
  1. ICATIBANT [Suspect]
     Active Substance: ICATIBANT ACETATE
     Indication: Hereditary angioedema
     Dosage: UNK
     Route: 058
     Dates: start: 20200101
  2. ICATIBANT [Suspect]
     Active Substance: ICATIBANT ACETATE
     Indication: Hereditary angioedema
     Dosage: UNK
     Route: 058
     Dates: start: 20200101
  3. ENOXAPARIN [Concomitant]
     Active Substance: ENOXAPARIN
     Indication: Hereditary angioedema
     Dosage: 4 MILLIGRAM
     Route: 065

REACTIONS (8)
  - Multiple sclerosis [Unknown]
  - Hemiparesis [Not Recovered/Not Resolved]
  - Erectile dysfunction [Not Recovered/Not Resolved]
  - Muscular weakness [Unknown]
  - Fall [Unknown]
  - Asthenia [Unknown]
  - Panic attack [Unknown]
  - Depression [Not Recovered/Not Resolved]
